FAERS Safety Report 18058087 (Version 1)
Quarter: 2020Q3

REPORT INFORMATION
  Report Type: Spontaneous
  Country: PH (occurrence: PH)
  Receive Date: 20200723
  Receipt Date: 20200723
  Transmission Date: 20201103
  Serious: Yes (Death, Other)
  Sender: FDA-Public Use
  Company Number: PH-TORRENT-00000037

PATIENT
  Age: 16 Year
  Sex: Male

DRUGS (3)
  1. OLANZAPINE. [Suspect]
     Active Substance: OLANZAPINE
     Indication: PRODUCT USED FOR UNKNOWN INDICATION
  2. VALPARIN [Suspect]
     Active Substance: VALPROATE SODIUM
     Indication: PRODUCT USED FOR UNKNOWN INDICATION
     Dosage: UNKNOWN
  3. ABILIFY [Suspect]
     Active Substance: ARIPIPRAZOLE
     Indication: MOOD SWINGS
     Dates: start: 201804

REACTIONS (5)
  - Insomnia [Unknown]
  - Completed suicide [Fatal]
  - Circulatory collapse [Unknown]
  - Product use in unapproved indication [Unknown]
  - Depressed mood [Unknown]

NARRATIVE: CASE EVENT DATE: 20200420
